FAERS Safety Report 8741889 (Version 2)
Quarter: 2012Q4

REPORT INFORMATION
  Report Type: 
  Country: US (occurrence: US)
  Receive Date: 20120824
  Receipt Date: 20120925
  Transmission Date: 20130627
  Serious: No
  Sender: FDA-Public Use
  Company Number: US-PFIZER INC-2012206745

PATIENT
  Age: 53 Year
  Sex: Female

DRUGS (3)
  1. CELEBREX [Suspect]
     Dosage: UNK
  2. NEURONTIN [Suspect]
     Dosage: 300 mg, 3x/day
     Route: 048
  3. PROTONIX [Suspect]
     Dosage: 40 mg, 1x/day
     Route: 048

REACTIONS (2)
  - Pain [Unknown]
  - Activities of daily living impaired [Unknown]
